FAERS Safety Report 15869396 (Version 2)
Quarter: 2019Q2

REPORT INFORMATION
  Report Type: Spontaneous
  Country: US (occurrence: US)
  Receive Date: 20190125
  Receipt Date: 20190424
  Transmission Date: 20190711
  Serious: No
  Sender: FDA-Public Use
  Company Number: US-ACTELION-A-NJ2019-184790

PATIENT
  Sex: Male
  Weight: 90.7 kg

DRUGS (3)
  1. UPTRAVI [Suspect]
     Active Substance: SELEXIPAG
     Indication: PULMONARY HYPERTENSION
     Dosage: 600 MCG, BID
     Route: 048
  2. UPTRAVI [Suspect]
     Active Substance: SELEXIPAG
     Dosage: 200 MCG, BID
     Route: 048
  3. OPSUMIT [Suspect]
     Active Substance: MACITENTAN
     Indication: PULMONARY HYPERTENSION
     Dosage: 10 MG, QD
     Route: 048

REACTIONS (16)
  - Tourette^s disorder [Unknown]
  - Muscle twitching [Unknown]
  - Paraesthesia [Unknown]
  - Tongue biting [Unknown]
  - Affective disorder [Unknown]
  - Therapy non-responder [Unknown]
  - Dizziness [Unknown]
  - Irritability [Unknown]
  - Peripheral swelling [Unknown]
  - Treatment noncompliance [Unknown]
  - Pain in extremity [Unknown]
  - Dyspnoea [Unknown]
  - Walking aid user [Unknown]
  - Presyncope [Unknown]
  - Suicidal ideation [Unknown]
  - Abdominal discomfort [Unknown]
